FAERS Safety Report 15540688 (Version 2)
Quarter: 2018Q4

REPORT INFORMATION
  Report Type: Report from Study
  Country: JP (occurrence: JP)
  Receive Date: 20181023
  Receipt Date: 20181105
  Transmission Date: 20190205
  Serious: Yes (Hospitalization)
  Sender: FDA-Public Use
  Company Number: JP-EISAI MEDICAL RESEARCH-EC-2018-046574

PATIENT
  Age: 75 Year
  Sex: Male
  Weight: 58 kg

DRUGS (17)
  1. LOTRIGA [Concomitant]
     Active Substance: OMEGA-3-ACID ETHYL ESTERS
  2. PEMBROLIZUMAB. [Suspect]
     Active Substance: PEMBROLIZUMAB
     Indication: RENAL CELL CARCINOMA
     Route: 041
     Dates: start: 20180423
  3. LIMAPROST ALFADEX [Concomitant]
     Active Substance: LIMAPROST
  4. SENNOSIDE [Concomitant]
     Active Substance: SENNOSIDES
  5. LENVATINIB [Suspect]
     Active Substance: LENVATINIB
     Route: 048
     Dates: start: 20180727, end: 20181016
  6. MAINTATE [Concomitant]
     Active Substance: BISOPROLOL FUMARATE
  7. PLETAAL OD [Concomitant]
     Active Substance: CILOSTAZOL
  8. TAKECAB [Concomitant]
     Active Substance: VONOPRAZAN FUMURATE
  9. VEGIN [Concomitant]
  10. NIFEDIPINE CR [Concomitant]
     Active Substance: NIFEDIPINE
  11. METHYLCOBAL [Concomitant]
     Active Substance: METHYLCOBALAMIN
  12. DEXALTIN [Concomitant]
     Active Substance: DEXAMETHASONE
  13. LENVATINIB [Suspect]
     Active Substance: LENVATINIB
     Indication: RENAL CELL CARCINOMA
     Route: 048
     Dates: start: 20180423, end: 20180726
  14. DAIKENCHUTO [Concomitant]
     Active Substance: HERBALS
  15. KETOPROFEN. [Concomitant]
     Active Substance: KETOPROFEN
  16. AZILVA [Concomitant]
     Active Substance: AZILSARTAN KAMEDOXOMIL
  17. BAYASPIRIN [Concomitant]
     Active Substance: ASPIRIN

REACTIONS (1)
  - Hypopituitarism [Recovering/Resolving]

NARRATIVE: CASE EVENT DATE: 20181017
